FAERS Safety Report 9033856 (Version 1)
Quarter: 2013Q1

REPORT INFORMATION
  Report Type: Spontaneous
  Country: US (occurrence: US)
  Receive Date: 20130128
  Receipt Date: 20130128
  Transmission Date: 20140127
  Serious: Yes (Other)
  Sender: FDA-Public Use
  Company Number: US-AMGEN-USASP2012071407

PATIENT
  Sex: Male

DRUGS (5)
  1. ENBREL [Suspect]
     Indication: PSORIATIC ARTHROPATHY
     Dosage: 50 MG, QWK
     Route: 058
  2. PREVACID [Concomitant]
     Dosage: 15 MG STB, UNK
  3. DAPSONE [Concomitant]
     Dosage: 25 MG, UNK
  4. PREDNISONE [Concomitant]
     Dosage: 2.5 MG, UNK
  5. HYDROCHLOROTH [Concomitant]
     Dosage: 25 MG, UNK

REACTIONS (4)
  - Syncope [Unknown]
  - Rash [Unknown]
  - Injection site erythema [Unknown]
  - Injection site haemorrhage [Unknown]
